FAERS Safety Report 6796004-4 (Version None)
Quarter: 2010Q2

REPORT INFORMATION
  Report Type: 
  Country: None (occurrence: None)
  Receive Date: 20100625
  Receipt Date: 20100616
  Transmission Date: 20101027
  Serious: Yes (Other)
  Sender: FDA-Public Use
  Company Number: GB-JNJFOC-20100604897

PATIENT
  Age: 40 Year
  Sex: Female
  Weight: 102 kg

DRUGS (5)
  1. ACETAMINOPHEN [Suspect]
     Route: 048
  2. ACETAMINOPHEN [Suspect]
     Indication: TOOTHACHE
     Route: 048
  3. CODEINE SULFATE [Suspect]
     Indication: TOOTHACHE
     Route: 048
  4. DEPAKOTE [Concomitant]
     Indication: BIPOLAR DISORDER
     Route: 048
  5. PRIADEL [Concomitant]
     Indication: BIPOLAR DISORDER
     Route: 048

REACTIONS (3)
  - DIZZINESS [None]
  - NAUSEA [None]
  - VOMITING [None]
